FAERS Safety Report 25268192 (Version 1)
Quarter: 2025Q2

REPORT INFORMATION
  Report Type: Spontaneous
  Country: US (occurrence: None)
  Receive Date: 20250503
  Receipt Date: 20250503
  Transmission Date: 20250717
  Serious: Yes (Life-Threatening, Hospitalization)
  Sender: FDA-CTU
  Company Number: None

PATIENT
  Age: 84 Year
  Sex: Female
  Weight: 60.75 kg

DRUGS (3)
  1. KEYTRUDA [Suspect]
     Active Substance: PEMBROLIZUMAB
     Indication: Lung neoplasm malignant
     Dates: start: 20250317, end: 20250317
  2. LOSARTAN [Concomitant]
     Active Substance: LOSARTAN
  3. ATORVASTATIN [Concomitant]
     Active Substance: ATORVASTATIN

REACTIONS (5)
  - Urticaria [None]
  - Pneumonia [None]
  - Hypertension [None]
  - Insomnia [None]
  - Infusion related reaction [None]

NARRATIVE: CASE EVENT DATE: 20250317
